FAERS Safety Report 8105070 (Version 5)
Quarter: 2012Q4

REPORT INFORMATION
  Report Type: 
  Country: US (occurrence: US)
  Receive Date: 20110824
  Receipt Date: 20121101
  Transmission Date: 20130627
  Serious: Yes (Other)
  Sender: FDA-Public Use
  Company Number: US-ASTRAZENECA-2011SE46957

PATIENT
  Age: 78 Year
  Sex: Female

DRUGS (57)
  1. NEXIUM [Suspect]
     Route: 048
  2. PRILOSEC [Suspect]
     Route: 048
     Dates: start: 1999
  3. ATENOLOL [Suspect]
     Route: 048
  4. CRESTOR [Suspect]
     Route: 048
  5. RHINOCORT [Suspect]
     Route: 045
  6. IMDUR [Suspect]
     Route: 048
  7. LOPRESSOR [Suspect]
     Route: 048
  8. MORPHINE [Suspect]
     Route: 065
  9. INDOCIN [Suspect]
     Route: 065
  10. TRAMADOL [Suspect]
     Route: 048
  11. UNSPECIFIED DRUG [Concomitant]
  12. Z PAK [Concomitant]
  13. ATROPINE [Concomitant]
  14. ALBUTEROL [Concomitant]
  15. VENTOLIN [Concomitant]
  16. PROVENTIL [Concomitant]
  17. AUGMENTIN [Concomitant]
  18. CIPRO [Concomitant]
  19. CLONIDINE [Concomitant]
  20. CODEINE [Concomitant]
  21. CORTICOSTEROID [Concomitant]
  22. FLAGYL [Concomitant]
  23. MACROBID [Concomitant]
  24. NITROFURADANTOIN [Concomitant]
  25. NITROGLYCERINE [Concomitant]
  26. NORVASC [Concomitant]
  27. OFLOXACIN EAR DROPS [Concomitant]
  28. TERAZOSIN [Concomitant]
  29. HYTRIN [Concomitant]
  30. TOBRAMYCIN EAR DROPS [Concomitant]
  31. TROVAN [Concomitant]
  32. VICODIN [Concomitant]
  33. XOPENEX [Concomitant]
  34. FENTANYL [Concomitant]
     Route: 042
  35. TOBRADEX ST EYE DROPS [Concomitant]
  36. LATEX [Concomitant]
  37. ACULAR EYE DROPS [Concomitant]
  38. ANTIDEPRESSANTS [Concomitant]
  39. ZOLOFT [Concomitant]
  40. BACTROBAN [Concomitant]
  41. BETA BLOCKERS [Concomitant]
  42. BIAXIN [Concomitant]
  43. BLEPHAMIDE EYE DROPS [Concomitant]
  44. CALCIUM CHANNEL BLOCKERS [Concomitant]
  45. CILOXIN EYE DROPS [Concomitant]
  46. DARVON [Concomitant]
  47. DARVOCET [Concomitant]
  48. DECONGESTANT [Concomitant]
  49. DYNACIRC [Concomitant]
  50. ERYTHROMYCIN [Concomitant]
  51. NASONEX [Concomitant]
  52. NSAIDS [Concomitant]
  53. PRAVACOL [Concomitant]
  54. RESTASIS [Concomitant]
  55. SPECTRACEF [Concomitant]
  56. ZYLET EYE DROPS [Concomitant]
  57. ALREX [Concomitant]

REACTIONS (15)
  - Road traffic accident [Unknown]
  - Limb injury [Unknown]
  - Contusion [Unknown]
  - Sternal fracture [Unknown]
  - Renal failure acute [Unknown]
  - Middle ear disorder [Unknown]
  - Device expulsion [Unknown]
  - Cataract [Unknown]
  - Chronic sinusitis [Unknown]
  - Infection [Unknown]
  - Drug intolerance [Unknown]
  - Hypersensitivity [Unknown]
  - Adverse reaction [Unknown]
  - Hearing impaired [Unknown]
  - Drug intolerance [Unknown]
